FAERS Safety Report 18678654 (Version 1)
Quarter: 2020Q4

REPORT INFORMATION
  Report Type: Spontaneous
  Country: UA (occurrence: UA)
  Receive Date: 20201230
  Receipt Date: 20201230
  Transmission Date: 20210114
  Serious: Yes (Other)
  Sender: FDA-Public Use
  Company Number: UA-JNJFOC-20201252450

PATIENT
  Age: 81 Year
  Sex: Female

DRUGS (6)
  1. SPIRONOLACTONE. [Concomitant]
     Active Substance: SPIRONOLACTONE
  2. ROSUVASTATIN CALCIUM. [Concomitant]
     Active Substance: ROSUVASTATIN CALCIUM
  3. BISOPROLOL [Concomitant]
     Active Substance: BISOPROLOL
  4. CORDARONE [Concomitant]
     Active Substance: AMIODARONE HYDROCHLORIDE
  5. XARELTO [Suspect]
     Active Substance: RIVAROXABAN
     Indication: PRODUCT USED FOR UNKNOWN INDICATION
     Dosage: 20 MG, QD
     Route: 048
  6. TRIFAS [TORASEMIDE] [Concomitant]
     Active Substance: TORSEMIDE

REACTIONS (5)
  - Thrombosis [Unknown]
  - Arrhythmia [Unknown]
  - Dizziness [Unknown]
  - Tachycardia [Unknown]
  - Hypertension [Unknown]
